FAERS Safety Report 16244448 (Version 6)
Quarter: 2021Q4

REPORT INFORMATION
  Report Type: Report from Study
  Country: FR (occurrence: FR)
  Receive Date: 20190426
  Receipt Date: 20211210
  Transmission Date: 20220304
  Serious: Yes (Death, Hospitalization, Other)
  Sender: FDA-Public Use
  Company Number: FR-JNJFOC-20190425744

PATIENT
  Age: 71 Year
  Sex: Female
  Weight: 85 kg

DRUGS (36)
  1. STELARA [Suspect]
     Active Substance: USTEKINUMAB
     Indication: Psoriasis
     Route: 058
     Dates: start: 20170728, end: 20170828
  2. STELARA [Suspect]
     Active Substance: USTEKINUMAB
     Route: 058
     Dates: start: 20170828, end: 20171027
  3. STELARA [Suspect]
     Active Substance: USTEKINUMAB
     Route: 058
     Dates: start: 20171027, end: 20180126
  4. STELARA [Suspect]
     Active Substance: USTEKINUMAB
     Route: 058
     Dates: start: 20180126, end: 20180323
  5. STELARA [Suspect]
     Active Substance: USTEKINUMAB
     Route: 058
     Dates: start: 201708
  6. STELARA [Suspect]
     Active Substance: USTEKINUMAB
     Route: 058
     Dates: start: 201801, end: 201802
  7. PREDNISONE [Concomitant]
     Active Substance: PREDNISONE
     Route: 065
     Dates: start: 20181004
  8. PREDNISONE [Concomitant]
     Active Substance: PREDNISONE
     Route: 065
     Dates: start: 201811
  9. CHLORAMBUCIL [Concomitant]
     Active Substance: CHLORAMBUCIL
     Route: 065
     Dates: start: 201811
  10. CHLORAMBUCIL [Concomitant]
     Active Substance: CHLORAMBUCIL
  11. DESLORATADINE [Concomitant]
     Active Substance: DESLORATADINE
     Dates: start: 201811
  12. KARDEGIC [Concomitant]
     Active Substance: ASPIRIN DL-LYSINE
     Route: 065
     Dates: start: 20130620
  13. KARDEGIC [Concomitant]
     Active Substance: ASPIRIN DL-LYSINE
     Route: 065
     Dates: start: 2015
  14. ATARAX                             /00058401/ [Concomitant]
     Route: 065
     Dates: start: 20150408
  15. AUGMENTIN                          /00852501/ [Concomitant]
     Route: 065
     Dates: start: 20150327, end: 20150403
  16. BETAMETHASONE VALERATE [Concomitant]
     Active Substance: BETAMETHASONE VALERATE
     Route: 065
     Dates: start: 20150408
  17. DAIVOBET [Concomitant]
     Active Substance: BETAMETHASONE DIPROPIONATE\CALCIPOTRIENE
     Dates: start: 20151126
  18. DERMOVAL                           /00008501/ [Concomitant]
     Route: 065
     Dates: start: 20150408
  19. DERMOVAL                           /00008501/ [Concomitant]
     Route: 065
     Dates: start: 20180717
  20. NORFLOXACIN [Concomitant]
     Active Substance: NORFLOXACIN
     Route: 065
     Dates: start: 20160114, end: 20160201
  21. ETIFOXINE [Concomitant]
     Active Substance: ETIFOXINE
     Route: 065
     Dates: start: 20180123
  22. ECO [Concomitant]
     Route: 065
     Dates: start: 20180323, end: 201804
  23. NERISONE [Concomitant]
     Active Substance: DIFLUCORTOLONE VALERATE
     Route: 065
     Dates: start: 20180323, end: 20180423
  24. DESONIDE [Concomitant]
     Active Substance: DESONIDE
     Route: 065
     Dates: start: 20180323
  25. GLYCEROTONE                        /00200601/ [Concomitant]
     Route: 065
     Dates: start: 20180323
  26. CHLORAMBUCIL [Concomitant]
     Active Substance: CHLORAMBUCIL
     Route: 065
     Dates: start: 20181004, end: 20190124
  27. CHLORAMBUCIL [Concomitant]
     Active Substance: CHLORAMBUCIL
     Route: 065
     Dates: start: 20181009
  28. FLECAINIDE [Concomitant]
     Active Substance: FLECAINIDE
     Dates: start: 20170728
  29. FLECAINIDE [Concomitant]
     Active Substance: FLECAINIDE
     Dates: start: 20170724
  30. ACETAMINOPHEN [Concomitant]
     Active Substance: ACETAMINOPHEN
     Route: 065
     Dates: start: 201811
  31. TRAMADOL [Concomitant]
     Active Substance: TRAMADOL
     Route: 065
     Dates: start: 201811
  32. HYDROXYZINE [Concomitant]
     Active Substance: HYDROXYZINE HYDROCHLORIDE
     Route: 065
     Dates: start: 201811
  33. ETIFOXINE [Concomitant]
     Active Substance: ETIFOXINE
     Route: 065
  34. BETAMETHASONE VALERATE [Concomitant]
     Active Substance: BETAMETHASONE VALERATE
  35. CLOBETASOL PROPIONATE [Concomitant]
     Active Substance: CLOBETASOL PROPIONATE
  36. CLOBEX                             /00012002/ [Concomitant]
     Route: 065

REACTIONS (9)
  - Death [Fatal]
  - Cutaneous T-cell lymphoma [Not Recovered/Not Resolved]
  - Bundle branch block right [Unknown]
  - Psoriasis [Unknown]
  - Inappropriate schedule of product administration [Unknown]
  - Off label use [Unknown]
  - Dental cyst [Unknown]
  - Osteosclerosis [Unknown]
  - Osteoarthritis [Unknown]

NARRATIVE: CASE EVENT DATE: 20180201
